FAERS Safety Report 20325001 (Version 2)
Quarter: 2022Q2

REPORT INFORMATION
  Report Type: Report from Study
  Country: US (occurrence: US)
  Receive Date: 20220111
  Receipt Date: 20220407
  Transmission Date: 20220720
  Serious: Yes (Other)
  Sender: FDA-Public Use
  Company Number: US-ABBVIE-21K-163-4195945-00

PATIENT
  Age: 64 Year
  Sex: Male

DRUGS (3)
  1. IMBRUVICA [Suspect]
     Active Substance: IBRUTINIB
     Indication: Chronic lymphocytic leukaemia
     Route: 048
     Dates: end: 2021
  2. IMBRUVICA [Suspect]
     Active Substance: IBRUTINIB
     Route: 048
     Dates: start: 20211018
  3. IMBRUVICA [Suspect]
     Active Substance: IBRUTINIB
     Route: 048

REACTIONS (11)
  - Limb operation [Unknown]
  - Right ventricular failure [Unknown]
  - Skin haemorrhage [Unknown]
  - Onychomadesis [Unknown]
  - Limb injury [Unknown]
  - Oedema peripheral [Unknown]
  - Hepatic function abnormal [Recovered/Resolved]
  - Oedema peripheral [Recovering/Resolving]
  - Localised infection [Unknown]
  - Post procedural infection [Unknown]
  - Oedema [Unknown]

NARRATIVE: CASE EVENT DATE: 20211005
